FAERS Safety Report 24641846 (Version 3)
Quarter: 2025Q1

REPORT INFORMATION
  Report Type: Spontaneous
  Country: KR (occurrence: KR)
  Receive Date: 20241120
  Receipt Date: 20250116
  Transmission Date: 20250409
  Serious: No
  Sender: PFIZER
  Company Number: KR-PFIZER INC-202400300885

PATIENT
  Age: 9 Year
  Sex: Female

DRUGS (1)
  1. GENOTROPIN [Suspect]
     Active Substance: SOMATROPIN
     Indication: Growth hormone deficiency
     Dates: start: 20241023

REACTIONS (3)
  - Drug dose omission by device [Unknown]
  - Device use error [Unknown]
  - Device breakage [Unknown]

NARRATIVE: CASE EVENT DATE: 20241101
